FAERS Safety Report 5884557-X (Version None)
Quarter: 2008Q3

REPORT INFORMATION
  Report Type: 
  Country: None (occurrence: None)
  Receive Date: 20080916
  Receipt Date: 20080909
  Transmission Date: 20090109
  Serious: Yes (Hospitalization, Other)
  Sender: FDA-Public Use
  Company Number: PHEH2005US03729

PATIENT

DRUGS (24)
  1. ZOMETA [Suspect]
     Indication: BREAST CANCER METASTATIC
     Dosage: 4 MG/ MONTHLY
     Route: 042
     Dates: start: 20030901, end: 20050203
  2. FEMARA [Concomitant]
     Dosage: 2.5 MG, BID
     Route: 048
     Dates: start: 20030901, end: 20040201
  3. ARIMIDEX [Suspect]
  4. LOTREL [Concomitant]
     Dosage: 5/10 MG
  5. ALENDRONATE SODIUM [Suspect]
     Indication: HYPERCALCAEMIA
     Route: 042
  6. TAMOXIFEN CITRATE [Concomitant]
     Indication: BREAST CANCER
     Dosage: 10 MG, BID
     Route: 048
     Dates: start: 20020601, end: 20030901
  7. FASLODEX [Concomitant]
     Dosage: 250 MG, QMO
     Route: 042
     Dates: start: 20040201, end: 20050301
  8. FOSAMAX [Concomitant]
     Dosage: 20 MG, QD
     Route: 048
  9. ATENOLOL [Concomitant]
     Dosage: 50 MG, QD
     Route: 048
  10. LIPITOR [Concomitant]
     Dosage: 40 MG, UNK
  11. ZOLOFT [Concomitant]
     Dosage: 50 MG, UNK
  12. AMBIEN [Concomitant]
     Dosage: 10 MG, UNK
  13. HYDROCODONE BITARTRATE [Concomitant]
     Dosage: UNK, UNK
  14. XANAX [Concomitant]
     Dosage: 0.25 MG, UNK
  15. FOLIC ACID [Concomitant]
     Dosage: 1 MG, UNK
  16. NEXIUM [Concomitant]
     Dosage: 40 MG, UNK
  17. IRON [Concomitant]
  18. GEMZAR [Concomitant]
     Dosage: UNK
     Dates: start: 20050501
  19. XELODA [Concomitant]
  20. TAXOTERE [Concomitant]
  21. PROTONIX [Concomitant]
  22. MULTI-VITAMINS [Concomitant]
  23. CALCIMATE PLUS [Concomitant]
  24. NEULASTA [Concomitant]

REACTIONS (35)
  - ANXIETY [None]
  - ARTHRALGIA [None]
  - BONE DISORDER [None]
  - BONE OPERATION [None]
  - BREAST RECONSTRUCTION [None]
  - CHEST WALL OPERATION [None]
  - DENTAL TREATMENT [None]
  - DYSPNOEA [None]
  - EATING DISORDER [None]
  - EMOTIONAL DISTRESS [None]
  - GINGIVAL PAIN [None]
  - HAEMORRHOIDS [None]
  - IMPAIRED HEALING [None]
  - INJURY [None]
  - METASTASES TO BONE [None]
  - NEURALGIA [None]
  - NIGHT SWEATS [None]
  - NUCLEAR MAGNETIC RESONANCE IMAGING ABNORMAL [None]
  - OEDEMA PERIPHERAL [None]
  - OESOPHAGEAL CANDIDIASIS [None]
  - ORAL CAVITY FISTULA [None]
  - ORAL DISORDER [None]
  - ORAL MUCOSAL EXFOLIATION [None]
  - OSTEONECROSIS [None]
  - PAIN [None]
  - PHYSICAL DISABILITY [None]
  - PLASTIC SURGERY [None]
  - PYREXIA [None]
  - RADIOTHERAPY [None]
  - RECTAL HAEMORRHAGE [None]
  - SCAR [None]
  - TOOTH INFECTION [None]
  - TOOTH LOSS [None]
  - TOOTHACHE [None]
  - WHITE BLOOD CELL COUNT INCREASED [None]
